FAERS Safety Report 9322926 (Version 3)
Quarter: 2014Q1

REPORT INFORMATION
  Report Type: Report from Study
  Country: CL (occurrence: CL)
  Receive Date: 20130602
  Receipt Date: 20140122
  Transmission Date: 20141002
  Serious: Yes (Other)
  Sender: FDA-Public Use
  Company Number: PHHY2013CL055199

PATIENT
  Age: 65 Year
  Sex: Male

DRUGS (1)
  1. TAREG [Suspect]
     Indication: HYPERTENSION
     Dosage: 1 DF, (320 MG) QD

REACTIONS (2)
  - Prostate cancer [Recovering/Resolving]
  - Pulmonary mass [Recovering/Resolving]
